FAERS Safety Report 14524167 (Version 1)
Quarter: 2018Q1

REPORT INFORMATION
  Report Type: Report from Study
  Country: US (occurrence: US)
  Receive Date: 20180213
  Receipt Date: 20180213
  Transmission Date: 20180509
  Serious: Yes (Hospitalization, Other)
  Sender: FDA-Public Use
  Company Number: US-ROCHE-2066925

PATIENT
  Age: 59 Year
  Sex: Female
  Weight: 65.83 kg

DRUGS (1)
  1. ACTEMRA [Suspect]
     Active Substance: TOCILIZUMAB
     Indication: RHEUMATOID ARTHRITIS
     Dosage: ONCE EVERY 2 WEEKS/EVERY OTHER WEEK ?ONGOING: YES
     Route: 058
     Dates: start: 2013

REACTIONS (7)
  - Haemorrhage [Recovering/Resolving]
  - Headache [Unknown]
  - Cerebrovascular accident [Recovering/Resolving]
  - Intracranial aneurysm [Recovering/Resolving]
  - Brain injury [Recovering/Resolving]
  - Malaise [Unknown]
  - Coma [Recovering/Resolving]

NARRATIVE: CASE EVENT DATE: 201404
